FAERS Safety Report 20621789 (Version 2)
Quarter: 2022Q3

REPORT INFORMATION
  Report Type: Spontaneous
  Country: US (occurrence: US)
  Receive Date: 20220322
  Receipt Date: 20220721
  Transmission Date: 20221026
  Serious: Yes (Hospitalization)
  Sender: FDA-Public Use
  Company Number: US-NOVARTISPH-NVSC2022US061649

PATIENT
  Sex: Male

DRUGS (1)
  1. PROMACTA [Suspect]
     Active Substance: ELTROMBOPAG OLAMINE
     Indication: Non-Hodgkin^s lymphoma
     Dosage: 75 MG, QD
     Route: 048
     Dates: start: 202201

REACTIONS (4)
  - Neoplasm malignant [Unknown]
  - Infection [Unknown]
  - Platelet count decreased [Unknown]
  - Product use in unapproved indication [Unknown]
